FAERS Safety Report 10619579 (Version 1)
Quarter: 2014Q4

REPORT INFORMATION
  Report Type: Spontaneous
  Country: DK (occurrence: DK)
  Receive Date: 20141202
  Receipt Date: 20141202
  Transmission Date: 20150529
  Serious: Yes (Congenital Anomaly)
  Sender: FDA-Public Use
  Company Number: DK-TEVA-524460ISR

PATIENT
  Age: 0 Day
  Sex: Male

DRUGS (1)
  1. CITALOPRAM [Suspect]
     Active Substance: CITALOPRAM HYDROBROMIDE
     Indication: DEPRESSION
     Dosage: INITIALLY 40 MG DAILY, THEN DECREASED TO 10 MG. STRENGTH: 40-10 MG
     Route: 064
     Dates: start: 20081218

REACTIONS (2)
  - Foetal exposure during pregnancy [Recovered/Resolved]
  - Congenital megacolon [Not Recovered/Not Resolved]

NARRATIVE: CASE EVENT DATE: 20110904
